FAERS Safety Report 14434745 (Version 1)
Quarter: 2018Q1

REPORT INFORMATION
  Report Type: Spontaneous
  Country: US (occurrence: US)
  Receive Date: 20180125
  Receipt Date: 20180125
  Transmission Date: 20180509
  Serious: Yes (Life-Threatening, Other)
  Sender: FDA-Public Use
  Company Number: US-BAXTER-2018BAX002633

PATIENT
  Age: 5 Year
  Sex: Male

DRUGS (3)
  1. NITROUS OXIDE. [Suspect]
     Active Substance: NITROUS OXIDE
     Indication: INDUCTION OF ANAESTHESIA
     Route: 065
  2. DANTROLENE SODIUM. [Suspect]
     Active Substance: DANTROLENE SODIUM
     Indication: HYPERTHERMIA MALIGNANT
     Dosage: 4 DOSES
     Route: 042
  3. SEVOFLURANE, USP [Suspect]
     Active Substance: SEVOFLURANE
     Indication: INDUCTION OF ANAESTHESIA
     Route: 055

REACTIONS (9)
  - Disseminated intravascular coagulation [Unknown]
  - Hepatic function abnormal [Recovering/Resolving]
  - Pulmonary haemorrhage [Unknown]
  - Shock [Unknown]
  - Hyperthermia malignant [Unknown]
  - Respiratory failure [Unknown]
  - Compartment syndrome [Unknown]
  - Renal failure [Recovered/Resolved]
  - Muscle rigidity [Unknown]
